FAERS Safety Report 9245822 (Version 1)
Quarter: 2013Q2

REPORT INFORMATION
  Report Type: Spontaneous
  Country: US (occurrence: US)
  Receive Date: 20130422
  Receipt Date: 20130422
  Transmission Date: 20140414
  Serious: Yes (Other)
  Sender: FDA-Public Use
  Company Number: US-JNJFOC-20130407480

PATIENT
  Age: 88 Year
  Sex: Male
  Weight: 73.03 kg

DRUGS (2)
  1. ZYRTEC IR [Suspect]
     Route: 048
  2. ZYRTEC IR [Suspect]
     Indication: MULTIPLE ALLERGIES
     Dosage: 1 TABLET EVERY NIGHT
     Route: 048
     Dates: end: 20130409

REACTIONS (3)
  - Palpitations [Not Recovered/Not Resolved]
  - Drug administered to patient of inappropriate age [Unknown]
  - Insomnia [Not Recovered/Not Resolved]
